FAERS Safety Report 5965188-X (Version None)
Quarter: 2008Q4

REPORT INFORMATION
  Report Type: 
  Country: None (occurrence: None)
  Receive Date: 20081119
  Receipt Date: 20081027
  Transmission Date: 20090506
  Serious: Yes (Other)
  Sender: FDA-Public Use
  Company Number: 2008S1019429

PATIENT
  Age: 26 Year
  Sex: Female

DRUGS (2)
  1. TOPIRAMATE [Suspect]
     Indication: GRAND MAL CONVULSION
     Dosage: 50 MG; DAILY
  2. VALPROATE SODIUM [Suspect]
     Indication: GRAND MAL CONVULSION
     Dosage: 2500 MG; DAILY

REACTIONS (3)
  - DRUG EXPOSURE DURING PREGNANCY [None]
  - DRUG INEFFECTIVE [None]
  - GRAND MAL CONVULSION [None]
